FAERS Safety Report 22898237 (Version 2)
Quarter: 2023Q4

REPORT INFORMATION
  Report Type: Report from Study
  Country: US (occurrence: US)
  Receive Date: 20230903
  Receipt Date: 20231031
  Transmission Date: 20240109
  Serious: Yes (Other)
  Sender: FDA-Public Use
  Company Number: US-ABBVIE-5389508

PATIENT
  Age: 66 Year
  Sex: Female

DRUGS (1)
  1. SKYRIZI [Suspect]
     Active Substance: RISANKIZUMAB-RZAA
     Indication: Psoriasis
     Dosage: MISSED HER LAST INJECTION ON 10 OCT 2023
     Route: 058

REACTIONS (9)
  - Bladder operation [Unknown]
  - Psoriatic arthropathy [Unknown]
  - Injection site bruising [Recovered/Resolved]
  - Fatigue [Unknown]
  - Psoriasis [Unknown]
  - Headache [Unknown]
  - Hypertension [Unknown]
  - Eye haemorrhage [Unknown]
  - Nausea [Unknown]

NARRATIVE: CASE EVENT DATE: 20230501
